FAERS Safety Report 5359600-7 (Version None)
Quarter: 2007Q2

REPORT INFORMATION
  Report Type: 
  Country: None (occurrence: None)
  Receive Date: 20070530
  Receipt Date: 20061019
  Transmission Date: 20071010
  Serious: Yes (Other)
  Sender: FDA-Public Use
  Company Number: US200606002050

PATIENT
  Age: 53 Year
  Sex: Male
  Weight: 108.8 kg

DRUGS (7)
  1. ZYPREXA [Suspect]
     Indication: BIPOLAR DISORDER
     Dosage: 20 MG, DAILY (1/D),; 30 MG, DAILY (1/D);
     Dates: start: 19990101
  2. ZYPREXA [Suspect]
     Indication: BIPOLAR DISORDER
     Dosage: 20 MG, DAILY (1/D),; 30 MG, DAILY (1/D);
     Dates: start: 20050317
  3. VIAGRA/SWE/(SILDENAFIL CITRATE) [Concomitant]
  4. CIALIS [Concomitant]
  5. GLIPIZIDE [Concomitant]
  6. DEPAKOTE [Concomitant]
  7. DIPHENHYDRAMINE HCL [Concomitant]

REACTIONS (6)
  - BLOOD CHOLESTEROL ABNORMAL [None]
  - DIABETES MELLITUS [None]
  - DIABETIC KETOACIDOSIS [None]
  - HYPERGLYCAEMIC HYPEROSMOLAR NONKETOTIC SYNDROME [None]
  - METABOLIC DISORDER [None]
  - PRESCRIBED OVERDOSE [None]
